FAERS Safety Report 10167547 (Version 1)
Quarter: 2014Q2

REPORT INFORMATION
  Report Type: Spontaneous
  Country: US (occurrence: US)
  Receive Date: 20140512
  Receipt Date: 20140512
  Transmission Date: 20141212
  Serious: No
  Sender: FDA-Public Use
  Company Number: US-BAYER-2014-069477

PATIENT
  Age: 65 Year
  Sex: Female

DRUGS (1)
  1. ALEVE GELCAPS [Suspect]
     Indication: ANALGESIC THERAPY
     Dosage: 1 DF, QD
     Route: 048
     Dates: start: 2013, end: 2014

REACTIONS (1)
  - Pruritus [Recovered/Resolved]
